FAERS Safety Report 13440908 (Version 1)
Quarter: 2017Q2

REPORT INFORMATION
  Report Type: Spontaneous
  Country: US (occurrence: US)
  Receive Date: 20170413
  Receipt Date: 20170413
  Transmission Date: 20170830
  Serious: No
  Sender: FDA-Public Use
  Company Number: US-BRISTOL-MYERS SQUIBB COMPANY-BMS-2017-026745

PATIENT
  Sex: Male
  Weight: 108.84 kg

DRUGS (5)
  1. ELIQUIS [Suspect]
     Active Substance: APIXABAN
     Indication: PRODUCT USED FOR UNKNOWN INDICATION
     Dosage: 5 MG, BID
     Route: 048
     Dates: start: 20161228
  2. METOPROLOL. [Concomitant]
     Active Substance: METOPROLOL
     Indication: ATRIAL FIBRILLATION
     Dosage: 50 MG, QD
     Route: 065
  3. ASPRIN [Concomitant]
     Active Substance: ASPIRIN
     Indication: ATRIAL FIBRILLATION
     Route: 065
  4. METOPROLOL. [Concomitant]
     Active Substance: METOPROLOL
     Indication: COAGULOPATHY
     Dosage: 50 MG, BID
     Route: 065
  5. ASPRIN [Concomitant]
     Active Substance: ASPIRIN
     Indication: COAGULOPATHY
     Route: 065

REACTIONS (2)
  - Muscular weakness [Unknown]
  - Weight increased [Unknown]
